FAERS Safety Report 24231176 (Version 1)
Quarter: 2024Q3

REPORT INFORMATION
  Report Type: Spontaneous
  Country: US (occurrence: US)
  Receive Date: 20240821
  Receipt Date: 20240821
  Transmission Date: 20241016
  Serious: Yes (Other)
  Sender: AMGEN
  Company Number: US-AMGEN-USASP2024161838

PATIENT
  Age: 63 Year
  Sex: Male

DRUGS (1)
  1. UPLIZNA [Suspect]
     Active Substance: INEBILIZUMAB-CDON
     Indication: Neuromyelitis optica spectrum disorder
     Dosage: UNK, Q6MO (DAY 1 / DAY 15/ Q 6 MONTHS)
     Route: 042
     Dates: start: 20240722

REACTIONS (4)
  - Hypertension [Recovering/Resolving]
  - Blood sodium decreased [Unknown]
  - Haematocrit increased [Unknown]
  - Blood urea increased [Unknown]

NARRATIVE: CASE EVENT DATE: 20240101
